FAERS Safety Report 24580814 (Version 1)
Quarter: 2024Q4

REPORT INFORMATION
  Report Type: Spontaneous
  Country: FR (occurrence: FR)
  Receive Date: 20241105
  Receipt Date: 20241105
  Transmission Date: 20250115
  Serious: Yes (Hospitalization)
  Sender: FRESENIUS KABI
  Company Number: None

PATIENT
  Age: 65 Year
  Sex: Female
  Weight: 65.5 kg

DRUGS (3)
  1. FLUCONAZOLE [Suspect]
     Active Substance: FLUCONAZOLE
     Indication: Liver abscess
     Dosage: DURATION OF DRUG ADMINISTRATION: 11 DAYS
     Route: 042
     Dates: start: 20240503, end: 20240514
  2. CEFTRIAXONE SODIUM [Suspect]
     Active Substance: CEFTRIAXONE SODIUM
     Indication: Liver abscess
     Dosage: DURATION OF DRUG ADMINISTRATION: 12 DAYS
     Route: 042
     Dates: start: 20240503, end: 20240515
  3. VANCOMYCIN HYDROCHLORIDE [Suspect]
     Active Substance: VANCOMYCIN HYDROCHLORIDE
     Indication: Liver abscess
     Dosage: DURATION OF DRUG ADMINISTRATION: 24 DAYS
     Route: 042
     Dates: start: 20240422, end: 20240516

REACTIONS (3)
  - Rash maculo-papular [Recovered/Resolved]
  - Pruritus [Recovered/Resolved]
  - Allergy test positive [Recovered/Resolved]

NARRATIVE: CASE EVENT DATE: 20240513
